FAERS Safety Report 10385587 (Version 1)
Quarter: 2014Q3

REPORT INFORMATION
  Report Type: Spontaneous
  Country: FR (occurrence: None)
  Receive Date: 20140812
  Receipt Date: 20140812
  Transmission Date: 20150326
  Serious: Yes (Hospitalization)
  Sender: FDA-Public Use
  Company Number: AUR-APL-2014-08451

PATIENT
  Age: 65 Year
  Sex: Female

DRUGS (4)
  1. SERTRALINE [Suspect]
     Active Substance: SERTRALINE HYDROCHLORIDE
     Indication: DEPRESSION
     Route: 048
     Dates: start: 20140618, end: 20140618
  2. HALDOL [Suspect]
     Active Substance: HALOPERIDOL
     Indication: PRODUCT USED FOR UNKNOWN INDICATION
     Route: 048
     Dates: start: 20140627, end: 20140718
  3. LEPTICUR (TROPATEPINE HYDROCHLORIDE) [Concomitant]
  4. CONTRAMAL [Suspect]
     Active Substance: TRAMADOL HYDROCHLORIDE
     Indication: PAIN
     Route: 048
     Dates: start: 20140627

REACTIONS (7)
  - Hypertension [None]
  - Muscle rigidity [None]
  - Somnolence [None]
  - Drug interaction [None]
  - Diarrhoea [None]
  - Hyperhidrosis [None]
  - Tachycardia [None]

NARRATIVE: CASE EVENT DATE: 20140717
